FAERS Safety Report 7160525-5 (Version None)
Quarter: 2010Q4

REPORT INFORMATION
  Report Type: 
  Country: None (occurrence: None)
  Receive Date: 20101214
  Receipt Date: 20091224
  Transmission Date: 20110411
  Serious: Yes (Other)
  Sender: FDA-Public Use
  Company Number: US-AMGEN-QUU378964

PATIENT

DRUGS (9)
  1. ENBREL [Suspect]
     Indication: RHEUMATOID ARTHRITIS
     Dosage: 50 MG, QWK
     Route: 058
     Dates: start: 20070801
  2. METHOTREXATE [Suspect]
     Dosage: UNK UNK, UNK
     Dates: start: 20000101
  3. METFORMIN HYDROCHLORIDE [Concomitant]
  4. NIASPAN [Concomitant]
  5. FOSINOPRIL SODIUM [Concomitant]
  6. NABUMETONE [Concomitant]
  7. EZETIMIBE/SIMVASTATIN [Concomitant]
  8. AMLODIPINE BESYLATE [Concomitant]
  9. UNSPECIFIED MEDICATION [Concomitant]

REACTIONS (1)
  - CHRONIC LYMPHOCYTIC LEUKAEMIA [None]
